FAERS Safety Report 6203922-4 (Version None)
Quarter: 2009Q2

REPORT INFORMATION
  Report Type: 
  Country: None (occurrence: None)
  Receive Date: 20090527
  Receipt Date: 20090520
  Transmission Date: 20091009
  Serious: Yes (Other)
  Sender: FDA-Public Use
  Company Number: A0785310A

PATIENT
  Age: 46 Year
  Sex: Female

DRUGS (2)
  1. LAMICTAL [Suspect]
     Route: 048
     Dates: start: 20090401
  2. HORMONE REPLACEMENT THERAPY [Concomitant]

REACTIONS (9)
  - AGITATION [None]
  - DEPRESSED LEVEL OF CONSCIOUSNESS [None]
  - FEELING ABNORMAL [None]
  - MEMORY IMPAIRMENT [None]
  - MUSCLE TIGHTNESS [None]
  - NERVOUSNESS [None]
  - PRURITUS [None]
  - RASH PAPULAR [None]
  - SOMNOLENCE [None]
